FAERS Safety Report 11969332 (Version 3)
Quarter: 2016Q1

REPORT INFORMATION
  Report Type: Report from Study
  Country: US (occurrence: US)
  Receive Date: 20160128
  Receipt Date: 20160321
  Transmission Date: 20160526
  Serious: Yes (Other)
  Sender: FDA-Public Use
  Company Number: PHEH2016US002102

PATIENT
  Sex: Female

DRUGS (2)
  1. ZORTRESS [Suspect]
     Active Substance: EVEROLIMUS
     Indication: LIVER TRANSPLANT
     Dosage: 3 MG, BID
     Route: 048
     Dates: start: 20151215
  2. ZORTRESS [Suspect]
     Active Substance: EVEROLIMUS
     Dosage: 2 MG (0.5 MG, 4), BID
     Route: 048
     Dates: start: 20160203

REACTIONS (3)
  - Liver transplant rejection [Unknown]
  - Memory impairment [Unknown]
  - Drug intolerance [Unknown]
